FAERS Safety Report 17594423 (Version 4)
Quarter: 2022Q4

REPORT INFORMATION
  Report Type: Report from Study
  Country: US (occurrence: US)
  Receive Date: 20200327
  Receipt Date: 20221123
  Transmission Date: 20230112
  Serious: Yes (Hospitalization, Disabling, Other)
  Sender: FDA-Public Use
  Company Number: None

PATIENT
  Age: 28 Year
  Sex: Female
  Weight: 93 kg

DRUGS (32)
  1. VIJOICE [Suspect]
     Active Substance: ALPELISIB
     Indication: Klippel-Trenaunay syndrome
     Dosage: 100 MG
     Route: 048
     Dates: start: 20190327
  2. VIJOICE [Suspect]
     Active Substance: ALPELISIB
     Dosage: 50 MG
     Route: 048
     Dates: start: 20200514, end: 20200521
  3. VIJOICE [Suspect]
     Active Substance: ALPELISIB
     Dosage: UNK
     Route: 065
  4. VIJOICE [Suspect]
     Active Substance: ALPELISIB
     Dosage: 200 MG
     Route: 048
     Dates: start: 20190327, end: 20190508
  5. VIJOICE [Suspect]
     Active Substance: ALPELISIB
     Dosage: 50 MG
     Route: 048
     Dates: start: 20190327, end: 20190508
  6. VIJOICE [Suspect]
     Active Substance: ALPELISIB
     Dosage: 150 MG
     Route: 048
     Dates: start: 20190327, end: 20190601
  7. VIJOICE [Suspect]
     Active Substance: ALPELISIB
     Dosage: 100 MG
     Route: 048
  8. VIJOICE [Suspect]
     Active Substance: ALPELISIB
     Dosage: 50 MG
     Route: 048
  9. VIJOICE [Suspect]
     Active Substance: ALPELISIB
     Dosage: 200 MG
     Route: 048
     Dates: start: 20190327, end: 20190511
  10. VIJOICE [Suspect]
     Active Substance: ALPELISIB
     Dosage: 150 MG
     Route: 048
     Dates: start: 20190327, end: 20190605
  11. VIJOICE [Suspect]
     Active Substance: ALPELISIB
     Dosage: 100 MG
     Route: 048
     Dates: start: 20190527, end: 20190716
  12. VIJOICE [Suspect]
     Active Substance: ALPELISIB
     Dosage: 100 MG
     Route: 048
     Dates: start: 20190327, end: 20190601
  13. VIJOICE [Suspect]
     Active Substance: ALPELISIB
     Dosage: UNK
     Route: 048
     Dates: start: 20190327, end: 20190927
  14. VIJOICE [Suspect]
     Active Substance: ALPELISIB
     Dosage: 50 MG
     Route: 048
     Dates: start: 20190930
  15. VIJOICE [Suspect]
     Active Substance: ALPELISIB
     Dosage: 100 MG
     Route: 048
     Dates: start: 20190327, end: 20191029
  16. VIJOICE [Suspect]
     Active Substance: ALPELISIB
     Dosage: 100 MG
     Route: 048
     Dates: start: 20190327, end: 20200101
  17. VIJOICE [Suspect]
     Active Substance: ALPELISIB
     Dosage: UNK
     Route: 048
     Dates: start: 20190327, end: 20200209
  18. VIJOICE [Suspect]
     Active Substance: ALPELISIB
     Dosage: 100 MG
     Route: 048
     Dates: start: 20200219
  19. VIJOICE [Suspect]
     Active Substance: ALPELISIB
     Dosage: UNK
     Route: 048
     Dates: start: 20190327, end: 20200318
  20. VIJOICE [Suspect]
     Active Substance: ALPELISIB
     Dosage: 50 MG
     Route: 048
     Dates: start: 20200402
  21. VIJOICE [Suspect]
     Active Substance: ALPELISIB
     Dosage: 50 MG
     Route: 048
     Dates: start: 20190327, end: 20200318
  22. VIJOICE [Suspect]
     Active Substance: ALPELISIB
     Dosage: UNK
     Route: 048
     Dates: start: 20190327, end: 20200426
  23. VIJOICE [Suspect]
     Active Substance: ALPELISIB
     Dosage: 50 MG
     Route: 048
     Dates: start: 20200514, end: 20200522
  24. BUPRENORPHINE [Concomitant]
     Active Substance: BUPRENORPHINE
     Indication: Pain
     Dosage: 150 UG, BID
     Route: 048
  25. BUPRENORPHINE [Concomitant]
     Active Substance: BUPRENORPHINE
     Dosage: 2 MG, TID (PRN)
     Route: 048
     Dates: end: 20200521
  26. ENOXAPARIN [Concomitant]
     Active Substance: ENOXAPARIN
     Indication: Pulmonary embolism
     Dosage: 90 MG, BID
     Route: 058
  27. ENOXAPARIN [Concomitant]
     Active Substance: ENOXAPARIN
     Dosage: 90 MG, BID
     Route: 058
     Dates: end: 20200521
  28. ENOXAPARIN [Concomitant]
     Active Substance: ENOXAPARIN
     Dosage: 0.85 ML (85 MG)
     Route: 058
  29. MOXIFLOXACIN [Concomitant]
     Active Substance: MOXIFLOXACIN
     Indication: Antibiotic prophylaxis
     Dosage: 400 MG, QD
     Route: 048
  30. MOXIFLOXACIN [Concomitant]
     Active Substance: MOXIFLOXACIN
     Dosage: 400 MG, QD
     Route: 048
     Dates: end: 20200521
  31. CELECOXIB [Concomitant]
     Active Substance: CELECOXIB
     Indication: Pain
     Dosage: 100 MG, BID
     Route: 048
     Dates: start: 20200322, end: 20200521
  32. METRONIDAZOLE [Concomitant]
     Active Substance: METRONIDAZOLE
     Indication: Product used for unknown indication
     Dosage: 1 OT, BID
     Route: 061

REACTIONS (17)
  - Proctalgia [Recovering/Resolving]
  - Hypertriglyceridaemia [Recovering/Resolving]
  - Suicidal behaviour [Not Recovered/Not Resolved]
  - Anxiety [Not Recovered/Not Resolved]
  - Depression [Not Recovered/Not Resolved]
  - Rectal haemorrhage [Not Recovered/Not Resolved]
  - Pulmonary embolism [Not Recovered/Not Resolved]
  - Blood cholesterol increased [Unknown]
  - Psychiatric symptom [Unknown]
  - Blood glucose increased [Unknown]
  - Dry eye [Recovered/Resolved]
  - Hyperglycaemia [Not Recovered/Not Resolved]
  - Arthralgia [Not Recovered/Not Resolved]
  - Toothache [Recovered/Resolved]
  - Infection [Unknown]
  - Pyrexia [Recovered/Resolved]
  - Sleep apnoea syndrome [Recovering/Resolving]

NARRATIVE: CASE EVENT DATE: 20200212
